FAERS Safety Report 5857842-5 (Version None)
Quarter: 2008Q3

REPORT INFORMATION
  Report Type: 
  Country: None (occurrence: None)
  Receive Date: 20080822
  Receipt Date: 20080808
  Transmission Date: 20090109
  Serious: Yes (Other)
  Sender: FDA-Public Use
  Company Number: DSA_32264_2008

PATIENT
  Sex: Male

DRUGS (1)
  1. LORAZEPAM [Suspect]
     Indication: DEPRESSION
     Dosage: (2.5 MG  QID), (2.5 MG PRN)

REACTIONS (1)
  - PSYCHOTIC DISORDER [None]
